FAERS Safety Report 8969894 (Version 1)
Quarter: 2012Q4

REPORT INFORMATION
  Report Type: 
  Country: PH (occurrence: PH)
  Receive Date: 20121217
  Receipt Date: 20121217
  Transmission Date: 20130627
  Serious: Yes (Death)
  Sender: FDA-Public Use
  Company Number: PHHY2012PH116016

PATIENT
  Sex: Female

DRUGS (3)
  1. ACLASTA [Suspect]
     Indication: OSTEOPOROSIS
     Dosage: 5 mg/100 ml once a year
     Route: 042
  2. ACLASTA [Suspect]
     Dosage: 5 mg/100 ml , once a year
     Route: 042
     Dates: start: 2010
  3. ACLASTA [Suspect]
     Dosage: 5 mg/100 ml , once a year
     Route: 042
     Dates: start: 20111112

REACTIONS (1)
  - Cerebrovascular accident [Fatal]
